FAERS Safety Report 8482960-5 (Version None)
Quarter: 2012Q3

REPORT INFORMATION
  Report Type: 
  Country: None (occurrence: None)
  Receive Date: 20120702
  Receipt Date: 20120626
  Transmission Date: 20120928
  Serious: Yes (Life-Threatening, Hospitalization)
  Sender: FDA-Public Use
  Company Number: JP-PFIZER INC-2012091772

PATIENT
  Sex: Female
  Weight: 49 kg

DRUGS (8)
  1. LANSOPRAZOLE [Suspect]
     Indication: GASTRIC ULCER
     Dosage: 15 MG, 1X/DAY
     Route: 048
     Dates: start: 20050502, end: 20120120
  2. LEVOFLOXACIN [Suspect]
     Indication: URINARY TRACT INFECTION
     Dosage: 500 MG, 2X/DAY
     Route: 048
     Dates: start: 20120118, end: 20120118
  3. DICLOFENAC SODIUM [Concomitant]
     Indication: PAIN
     Dosage: 25 MG ONCE AS NEEDED
     Dates: start: 20120110, end: 20120120
  4. ALLOPURINOL [Suspect]
     Indication: HYPERURICAEMIA
     Dosage: 100 MG, 1X/DAY
     Route: 048
     Dates: start: 20061225, end: 20120120
  5. ALDACTONE [Suspect]
     Dosage: 25 MG, 1X/DAY
     Route: 048
     Dates: start: 20100704, end: 20120120
  6. ONON [Concomitant]
     Indication: RHINITIS ALLERGIC
     Dosage: 250 MG, 2X/DAY
     Route: 048
     Dates: start: 20050309, end: 20120120
  7. FUROSEMIDE [Suspect]
     Indication: RENAL FAILURE CHRONIC
     Dosage: 20 MG, 1X/DAY
     Route: 048
     Dates: start: 20050817, end: 20120120
  8. CELEBREX [Suspect]
     Indication: PAIN
     Dosage: 100 MG ONCE DAILY AS NEEDED
     Route: 048
     Dates: start: 20120110, end: 20120120

REACTIONS (2)
  - ERYTHEMA MULTIFORME [None]
  - DISSEMINATED INTRAVASCULAR COAGULATION [None]
